FAERS Safety Report 9410567 (Version 1)
Quarter: 2013Q3

REPORT INFORMATION
  Report Type: Spontaneous
  Country: US (occurrence: None)
  Receive Date: 20130718
  Receipt Date: 20130718
  Transmission Date: 20140515
  Serious: No
  Sender: FDA-Public Use
  Company Number: None

PATIENT
  Age: 57 Year
  Sex: Male
  Weight: 126.8 kg

DRUGS (3)
  1. INCIVEK [Suspect]
     Indication: CHRONIC HEPATITIS C
     Dosage: 750MG/TID  TID  PO
     Route: 048
  2. RIBASPHERE RIBAPAK [Suspect]
     Dosage: 600MG/AM  600MG/PM   BID  PO
     Route: 048
  3. PEGASYS [Suspect]

REACTIONS (2)
  - Yellow skin [None]
  - Depression [None]
